FAERS Safety Report 21196285 (Version 1)
Quarter: 2022Q3

REPORT INFORMATION
  Report Type: Spontaneous
  Country: US (occurrence: US)
  Receive Date: 20220810
  Receipt Date: 20220810
  Transmission Date: 20221026
  Serious: No
  Sender: FDA-Public Use
  Company Number: US-BRISTOL-MYERS SQUIBB COMPANY-2022-088011

PATIENT
  Age: 65 Year
  Sex: Male
  Weight: 86.18 kg

DRUGS (1)
  1. ORENCIA [Suspect]
     Active Substance: ABATACEPT
     Indication: Rheumatoid arthritis
     Dosage: DOSE : UNAVAILABLE;     FREQ : UNAVAILABLE
     Route: 042
     Dates: start: 2022

REACTIONS (4)
  - Peripheral swelling [Unknown]
  - Joint swelling [Unknown]
  - Neck pain [Unknown]
  - Arthralgia [Unknown]

NARRATIVE: CASE EVENT DATE: 20220801
